FAERS Safety Report 7079775-1 (Version None)
Quarter: 2010Q4

REPORT INFORMATION
  Report Type: 
  Country: None (occurrence: None)
  Receive Date: 20101102
  Receipt Date: 20101020
  Transmission Date: 20110411
  Serious: Yes (Other)
  Sender: FDA-Public Use
  Company Number: US-PFIZER INC-2010133996

PATIENT
  Sex: Female

DRUGS (3)
  1. LIPITOR [Suspect]
  2. CELEBREX [Suspect]
  3. LINCOCIN [Suspect]

REACTIONS (2)
  - CONFUSIONAL STATE [None]
  - MEMORY IMPAIRMENT [None]
